FAERS Safety Report 4431275-0 (Version None)
Quarter: 2004Q3

REPORT INFORMATION
  Report Type: 
  Country: None (occurrence: None)
  Receive Date: 20040818
  Receipt Date: 20040802
  Transmission Date: 20050211
  Serious: Yes (Other)
  Sender: FDA-Public Use
  Company Number: B0342034A

PATIENT
  Age: 21 Year
  Sex: Female

DRUGS (2)
  1. MYLERAN [Suspect]
  2. CYCLOPHOSPHAMIDE [Suspect]

REACTIONS (1)
  - GRAND MAL CONVULSION [None]
